FAERS Safety Report 10162147 (Version 1)
Quarter: 2014Q2

REPORT INFORMATION
  Report Type: Spontaneous
  Country: US (occurrence: US)
  Receive Date: 20140509
  Receipt Date: 20140509
  Transmission Date: 20141212
  Serious: Yes (Other)
  Sender: FDA-Public Use
  Company Number: US-BAYER-2014-067570

PATIENT
  Age: 37 Year
  Sex: Female
  Weight: 76.19 kg

DRUGS (4)
  1. YAZ [Suspect]
  2. ZYRTEC [Concomitant]
  3. OMEPRAZOLE [Concomitant]
  4. SOLODYN [Concomitant]

REACTIONS (2)
  - Deep vein thrombosis [Recovered/Resolved]
  - Cholecystectomy [None]
